FAERS Safety Report 14429671 (Version 3)
Quarter: 2018Q2

REPORT INFORMATION
  Report Type: Report from Study
  Country: US (occurrence: US)
  Receive Date: 20180123
  Receipt Date: 20180627
  Transmission Date: 20180711
  Serious: Yes (Other)
  Sender: FDA-Public Use
  Company Number: US-AMGEN-USASL2017181444

PATIENT
  Sex: Male

DRUGS (2)
  1. REPATHA [Suspect]
     Active Substance: EVOLOCUMAB
     Indication: CARDIAC DISORDER
     Dosage: 140 MG, Q2WK
     Route: 065
     Dates: start: 201511
  2. REPATHA [Suspect]
     Active Substance: EVOLOCUMAB
     Dosage: 140 MG, QMO
     Route: 065

REACTIONS (3)
  - Hepatic neoplasm [Unknown]
  - Off label use [Unknown]
  - Gastrointestinal neoplasm [Unknown]

NARRATIVE: CASE EVENT DATE: 2018
